FAERS Safety Report 9144590 (Version 1)
Quarter: 2013Q1

REPORT INFORMATION
  Report Type: Spontaneous
  Country: FR (occurrence: FR)
  Receive Date: 20130306
  Receipt Date: 20130306
  Transmission Date: 20140127
  Serious: Yes (Disabling, Other)
  Sender: FDA-Public Use
  Company Number: FR-ROCHE-1197591

PATIENT
  Age: 70 Year
  Sex: Female
  Weight: 54 kg

DRUGS (8)
  1. LUCENTIS [Suspect]
     Indication: AGE-RELATED MACULAR DEGENERATION
     Route: 050
     Dates: start: 20080718
  2. LUCENTIS [Suspect]
     Route: 050
     Dates: start: 20080908
  3. LUCENTIS [Suspect]
     Route: 050
     Dates: start: 20081010
  4. LUCENTIS [Suspect]
     Route: 050
     Dates: start: 20090609
  5. LUCENTIS [Suspect]
     Route: 050
     Dates: start: 20090710
  6. COSOPT [Concomitant]
     Route: 065
     Dates: start: 2008
  7. KENZEN [Concomitant]
     Route: 065
     Dates: start: 20080317
  8. CACIT VITAMINE D3 [Concomitant]
     Route: 065

REACTIONS (4)
  - Arthralgia [Recovered/Resolved]
  - Inflammatory pain [Recovered/Resolved]
  - Pain [Recovered/Resolved]
  - Ear congestion [Recovered/Resolved]
